FAERS Safety Report 7979345-4 (Version None)
Quarter: 2011Q4

REPORT INFORMATION
  Report Type: 
  Country: None (occurrence: None)
  Receive Date: 20111201
  Receipt Date: 20111120
  Transmission Date: 20120403
  Serious: Yes (Other)
  Sender: FDA-Public Use
  Company Number: 2011SP052660

PATIENT
  Sex: Female

DRUGS (2)
  1. PEG-INTRON [Suspect]
     Indication: HEPATITIS C
     Dates: start: 20111025
  2. RIBAVIRIN [Suspect]
     Indication: HEPATITIS C
     Dates: start: 20111025

REACTIONS (10)
  - MALAISE [None]
  - LOSS OF CONSCIOUSNESS [None]
  - TOOTH FRACTURE [None]
  - INSOMNIA [None]
  - ANXIETY [None]
  - WEIGHT DECREASED [None]
  - CANDIDIASIS [None]
  - GASTRIC PH DECREASED [None]
  - DRUG INEFFECTIVE [None]
  - EATING DISORDER [None]
